FAERS Safety Report 11455571 (Version 1)
Quarter: 2015Q3

REPORT INFORMATION
  Report Type: Spontaneous
  Country: US (occurrence: US)
  Receive Date: 20150903
  Receipt Date: 20150903
  Transmission Date: 20151125
  Serious: No
  Sender: FDA-Public Use
  Company Number: US-BEH-2014043875

PATIENT
  Sex: Male
  Weight: 81 kg

DRUGS (14)
  1. PREDNISONE. [Concomitant]
     Active Substance: PREDNISONE
  2. COMBIVENT [Concomitant]
     Active Substance: ALBUTEROL SULFATE\IPRATROPIUM BROMIDE
  3. OXYGEN. [Concomitant]
     Active Substance: OXYGEN
  4. LMX [Concomitant]
     Active Substance: LIDOCAINE
  5. HYDROCODONE BITARTRATE AND ACETAMINOPHEN [Concomitant]
     Active Substance: ACETAMINOPHEN\HYDROCODONE BITARTRATE
  6. HYDROCODONE-HOMATROPINE [Concomitant]
  7. ZEMAIRA [Suspect]
     Active Substance: .ALPHA.1-PROTEINASE INHIBITOR HUMAN
     Indication: ALPHA-1 ANTI-TRYPSIN DEFICIENCY
     Dosage: 6.5 ML/MIN
     Route: 042
  8. SODIUM CHLORIDE. [Concomitant]
     Active Substance: SODIUM CHLORIDE
  9. VITAMIN D [Concomitant]
     Active Substance: CHOLECALCIFEROL
  10. DIPHENHYDRAMINE. [Concomitant]
     Active Substance: DIPHENHYDRAMINE
  11. ALBUTEROL. [Concomitant]
     Active Substance: ALBUTEROL
  12. NAPROXEN. [Concomitant]
     Active Substance: NAPROXEN
  13. EPIPEN [Concomitant]
     Active Substance: EPINEPHRINE
  14. NIACIN. [Concomitant]
     Active Substance: NIACIN

REACTIONS (1)
  - Pyrexia [Unknown]
